FAERS Safety Report 13225193 (Version 1)
Quarter: 2017Q1

REPORT INFORMATION
  Report Type: Spontaneous
  Country: CH (occurrence: CH)
  Receive Date: 20170213
  Receipt Date: 20170213
  Transmission Date: 20170428
  Serious: Yes (Other)
  Sender: FDA-Public Use
  Company Number: PHHY2017CH019529

PATIENT
  Age: 5 Year
  Sex: Female

DRUGS (2)
  1. PACLITAXEL. [Suspect]
     Active Substance: PACLITAXEL
     Indication: SQUAMOUS CELL CARCINOMA OF THE CERVIX
     Dosage: 175 MG/M2, UNK
     Route: 064
  2. CISPLATIN. [Suspect]
     Active Substance: CISPLATIN
     Indication: PRODUCT USED FOR UNKNOWN INDICATION
     Dosage: 75 MG/M2, CYCLIC
     Route: 064

REACTIONS (6)
  - Respiratory distress [Unknown]
  - Hyperbilirubinaemia [Unknown]
  - Embryonal rhabdomyosarcoma [Recovered/Resolved]
  - Foetal exposure during pregnancy [Unknown]
  - Hypoglycaemia [Unknown]
  - Premature baby [Unknown]
